FAERS Safety Report 6857877-X (Version None)
Quarter: 2010Q3

REPORT INFORMATION
  Report Type: 
  Country: None (occurrence: None)
  Receive Date: 20100719
  Receipt Date: 20080129
  Transmission Date: 20110219
  Serious: No
  Sender: FDA-Public Use
  Company Number: US-PFIZER INC-2008010025

PATIENT
  Sex: Female
  Weight: 71.818 kg

DRUGS (3)
  1. CHANTIX [Suspect]
     Indication: SMOKING CESSATION THERAPY
     Dates: start: 20080121
  2. ESTROVEN [Concomitant]
     Indication: MENOPAUSAL SYMPTOMS
  3. CENTRUM A TO ZINC [Concomitant]

REACTIONS (3)
  - ABNORMAL DREAMS [None]
  - DRY MOUTH [None]
  - INSOMNIA [None]
